FAERS Safety Report 8770833 (Version 1)
Quarter: 2012Q4

REPORT INFORMATION
  Report Type: 
  Country: JP (occurrence: JP)
  Receive Date: 20120906
  Receipt Date: 20120906
  Transmission Date: 20130627
  Serious: Yes (Other)
  Sender: FDA-Public Use
  Company Number: JP-UCBSA-064792

PATIENT
  Age: 37 Year
  Sex: Male

DRUGS (1)
  1. XYZAL [Suspect]
     Indication: DERMATITIS CONTACT
     Route: 048
     Dates: start: 20120710, end: 20120710

REACTIONS (3)
  - Shock [Recovered/Resolved]
  - Urticaria [Recovered/Resolved]
  - Dyspnoea [Recovered/Resolved]
